FAERS Safety Report 8408348-0 (Version None)
Quarter: 2012Q2

REPORT INFORMATION
  Report Type: 
  Country: None (occurrence: None)
  Receive Date: 20120604
  Receipt Date: 20120525
  Transmission Date: 20120825
  Serious: Yes (Other)
  Sender: FDA-Public Use
  Company Number: US-ABBOTT-12P-163-0939626-00

PATIENT
  Sex: Female

DRUGS (1)
  1. LUPRON DEPOT [Suspect]
     Indication: BREAST CANCER FEMALE
     Route: 030
     Dates: start: 20120301, end: 20120501

REACTIONS (2)
  - SURGERY [None]
  - OFF LABEL USE [None]
